FAERS Safety Report 6939504-6 (Version None)
Quarter: 2010Q3

REPORT INFORMATION
  Report Type: 
  Country: None (occurrence: None)
  Receive Date: 20100819
  Receipt Date: 20100804
  Transmission Date: 20110219
  Serious: Yes (Hospitalization)
  Sender: FDA-Public Use
  Company Number: DSJ-2010-13281

PATIENT
  Age: 44 Year
  Sex: Female

DRUGS (3)
  1. BENICAR [Suspect]
     Indication: HYPERTENSION
     Dosage: 40 MG (40 MG,1 IN 1 D),PER ORAL
     Route: 048
     Dates: start: 20100401
  2. LEVOTHYROXINE SODIUM [Concomitant]
  3. VALERIANA OFFICINALIS L (VALERIANA OFFICINALIS) (VALERIANA OFFICINALIS [Concomitant]

REACTIONS (4)
  - DRUG INEFFECTIVE [None]
  - DYSPNOEA [None]
  - HEADACHE [None]
  - NECK PAIN [None]
